FAERS Safety Report 7521157-X (Version None)
Quarter: 2011Q2

REPORT INFORMATION
  Report Type: 
  Country: None (occurrence: None)
  Receive Date: 20110603
  Receipt Date: 20101122
  Transmission Date: 20111010
  Serious: Yes (Other)
  Sender: FDA-Public Use
  Company Number: US-BAYER-201042071NA

PATIENT
  Age: 32 Year
  Sex: Female
  Weight: 97.727 kg

DRUGS (3)
  1. NEXIUM [Concomitant]
  2. ULTRAVIST 370 [Suspect]
     Indication: ABDOMINAL PAIN
     Dosage: RIGHT HAND USING WARMER AND POWER INJECTOR @ A RATE OF 2 CC /SECOND
     Route: 042
     Dates: start: 20101122, end: 20101122
  3. ULTRAVIST 370 [Suspect]
     Indication: COMPUTERISED TOMOGRAM ABDOMEN
     Dosage: ULTRAVIST GIVEN AS ORAL CONTRAST
     Route: 048
     Dates: start: 20101122, end: 20101122

REACTIONS (4)
  - PRURITUS [None]
  - DYSPNOEA [None]
  - OROPHARYNGEAL DISCOMFORT [None]
  - SPUTUM RETENTION [None]
